FAERS Safety Report 9993608 (Version 1)
Quarter: 2014Q1

REPORT INFORMATION
  Report Type: Spontaneous
  Country: US (occurrence: US)
  Receive Date: 20140310
  Receipt Date: 20140310
  Transmission Date: 20141002
  Serious: No
  Sender: FDA-Public Use
  Company Number: US-AMGEN-USASP2013027153

PATIENT
  Age: 74 Year
  Sex: Male

DRUGS (3)
  1. SENSIPAR [Suspect]
     Indication: HYPERPARATHYROIDISM SECONDARY
     Dosage: 60 MG, QD
     Dates: start: 201302
  2. SEVELAMER [Concomitant]
     Dosage: UNK UNK, BID
  3. ZEMPLAR [Concomitant]
     Dosage: 3 MUG, Q3WK

REACTIONS (2)
  - Blood phosphorus increased [Unknown]
  - Blood parathyroid hormone abnormal [Unknown]
